FAERS Safety Report 18970507 (Version 4)
Quarter: 2022Q3

REPORT INFORMATION
  Report Type: Other
  Country: US (occurrence: None)
  Receive Date: 20210305
  Receipt Date: 20220925
  Transmission Date: 20221027
  Serious: Yes (Other)
  Sender: FDA-Public Use
  Company Number: US-ROCHE-2783407

PATIENT
  Sex: Male

DRUGS (2)
  1. OCREVUS [Suspect]
     Active Substance: OCRELIZUMAB
     Indication: Relapsing-remitting multiple sclerosis
     Dosage: LAST DATE OF TREATMENT: 03/JUL/2020 AND ANTICIPATED DATE WAS DEC/2020?THERAPY DATES: 15/DEC/2021.
     Route: 042
     Dates: start: 20171219
  2. OCREVUS [Suspect]
     Active Substance: OCRELIZUMAB
     Route: 042
     Dates: start: 20180515

REACTIONS (6)
  - Optic neuritis [Not Recovered/Not Resolved]
  - Gait disturbance [Not Recovered/Not Resolved]
  - Balance disorder [Unknown]
  - Amnesia [Not Recovered/Not Resolved]
  - Spondylitis [Unknown]
  - Blindness [Unknown]
